FAERS Safety Report 10798043 (Version 1)
Quarter: 2015Q1

REPORT INFORMATION
  Report Type: Spontaneous
  Country: US (occurrence: US)
  Receive Date: 20150216
  Receipt Date: 20150216
  Transmission Date: 20150721
  Serious: No
  Sender: FDA-Public Use
  Company Number: US-PFIZER INC-2015054437

PATIENT
  Sex: Male

DRUGS (2)
  1. DILANTIN [Suspect]
     Active Substance: PHENYTOIN
     Indication: SEIZURE
     Dosage: UNK
  2. TOPAMAX [Suspect]
     Active Substance: TOPIRAMATE
     Indication: SEIZURE
     Dosage: UNK

REACTIONS (5)
  - Logorrhoea [Unknown]
  - Aggression [Unknown]
  - Product quality issue [Unknown]
  - Feeling abnormal [Unknown]
  - Inappropriate affect [Unknown]

NARRATIVE: CASE EVENT DATE: 1990
